FAERS Safety Report 17588891 (Version 1)
Quarter: 2020Q1

REPORT INFORMATION
  Report Type: Spontaneous
  Country: AR (occurrence: AR)
  Receive Date: 20200327
  Receipt Date: 20200327
  Transmission Date: 20200409
  Serious: Yes (Other)
  Sender: FDA-Public Use
  Company Number: AR-AMGEN-ARGSP2020048443

PATIENT
  Age: 46 Year
  Sex: Female

DRUGS (1)
  1. ENBREL [Suspect]
     Active Substance: ETANERCEPT
     Indication: RHEUMATOID ARTHRITIS
     Dosage: 50 MILLIGRAM, QWK
     Route: 065
     Dates: start: 20190226

REACTIONS (7)
  - Respiratory disorder [Unknown]
  - Blindness [Unknown]
  - Bone disorder [Unknown]
  - Pain [Unknown]
  - Suicidal ideation [Unknown]
  - Peripheral swelling [Unknown]
  - Gait inability [Unknown]
